FAERS Safety Report 9166010 (Version 2)
Quarter: 2013Q2

REPORT INFORMATION
  Report Type: Spontaneous
  Country: DK (occurrence: DK)
  Receive Date: 20130315
  Receipt Date: 20130509
  Transmission Date: 20140414
  Serious: Yes (Other)
  Sender: FDA-Public Use
  Company Number: DK-PFIZER INC-2013081346

PATIENT
  Age: 71 Year
  Sex: Male

DRUGS (6)
  1. REFACTO AF [Suspect]
     Indication: FACTOR VIII DEFICIENCY
     Dosage: 90 UG/KG, EVERY SECOND HOUR
  2. REFACTO AF [Suspect]
     Dosage: 25 UG/KG, 2X/DAY
  3. REFACTO AF [Suspect]
     Dosage: CUMULATIVE DOSAGE: 8000 IU
     Dates: start: 20061214
  4. REFACTO AF [Suspect]
     Dosage: CUMULATIVE DOSAGE: 8000 IU
     Dates: start: 20071009
  5. REFACTO AF [Suspect]
     Dosage: CUMULATIVE DOSAGE: 14000 IU
     Dates: start: 20090916, end: 20090920
  6. TRANEXAMIC ACID [Concomitant]
     Dosage: 1000 MG, 4X/DAY

REACTIONS (1)
  - Factor VIII inhibition [Recovered/Resolved]
